FAERS Safety Report 24749665 (Version 7)
Quarter: 2025Q2

REPORT INFORMATION
  Report Type: Report from Study
  Country: CN (occurrence: CN)
  Receive Date: 20241218
  Receipt Date: 20250617
  Transmission Date: 20250717
  Serious: Yes (Hospitalization, Other)
  Sender: PFIZER
  Company Number: CN-TAKEDA-2023TUS068918

PATIENT
  Age: 69 Year
  Sex: Female
  Weight: 59.3 kg

DRUGS (23)
  1. BRENTUXIMAB VEDOTIN [Suspect]
     Active Substance: BRENTUXIMAB VEDOTIN
     Indication: Anaplastic large cell lymphoma T- and null-cell types
     Route: 041
     Dates: start: 20230608, end: 20230608
  2. BRENTUXIMAB VEDOTIN [Suspect]
     Active Substance: BRENTUXIMAB VEDOTIN
     Route: 041
     Dates: start: 20230630, end: 20230630
  3. METHYLPREDNISOLONE SODIUM SUCCINATE [Suspect]
     Active Substance: METHYLPREDNISOLONE SODIUM SUCCINATE
     Indication: Anaplastic large cell lymphoma T- and null-cell types
     Dosage: 80 MILLIGRAM, QD
     Route: 042
     Dates: start: 20230608, end: 20230701
  4. DOXORUBICIN [Suspect]
     Active Substance: DOXORUBICIN
     Indication: Anaplastic large cell lymphoma T- and null-cell types
     Dosage: 20 MILLIGRAM, QD
     Route: 042
     Dates: start: 20230608, end: 20230608
  5. DOXORUBICIN [Suspect]
     Active Substance: DOXORUBICIN
     Dosage: 50 MILLIGRAM, QD
     Route: 042
     Dates: start: 20230630, end: 20230630
  6. CYCLOPHOSPHAMIDE [Suspect]
     Active Substance: CYCLOPHOSPHAMIDE
     Indication: Anaplastic large cell lymphoma T- and null-cell types
     Dosage: 1179 MILLIGRAM, QD
     Route: 042
     Dates: start: 20230608, end: 20230630
  7. CYCLOPHOSPHAMIDE [Suspect]
     Active Substance: CYCLOPHOSPHAMIDE
     Dosage: 800 MILLIGRAM, QD
     Route: 042
     Dates: start: 20230727, end: 20230831
  8. SODIUM BICARBONATE [Concomitant]
     Active Substance: SODIUM BICARBONATE
     Indication: Prophylaxis
     Dosage: 250 MILLILITER, QD
     Route: 042
     Dates: start: 20230608, end: 20230609
  9. ACYCLOVIR [Concomitant]
     Active Substance: ACYCLOVIR
     Indication: Infection prophylaxis
     Dosage: 400 MILLIGRAM, BID
     Route: 048
     Dates: start: 20230608
  10. PALONOSETRON HYDROCHLORIDE [Concomitant]
     Active Substance: PALONOSETRON HYDROCHLORIDE
     Indication: Prophylaxis of nausea and vomiting
     Dosage: 0.5 MILLIGRAM, QD
     Route: 048
     Dates: start: 20230607, end: 202401
  11. OMEPRAZOLE [Concomitant]
     Active Substance: OMEPRAZOLE
     Indication: Prophylaxis
     Dosage: 20 MILLIGRAM, QD
     Route: 048
     Dates: start: 20230608
  12. LEUCOGEN [Concomitant]
     Active Substance: LEUCOGEN
     Indication: White blood cell count increased
     Dosage: 20 MILLIGRAM, TID
     Route: 048
     Dates: start: 20230608
  13. CEFACLOR [Concomitant]
     Active Substance: CEFACLOR
     Indication: Infection prophylaxis
     Dosage: 375 MILLIGRAM, BID
     Route: 048
     Dates: start: 20230608
  14. ACETYLCYSTEINE [Concomitant]
     Active Substance: ACETYLCYSTEINE
     Indication: Prophylaxis
     Dosage: UNK UNK, QD
     Route: 065
     Dates: start: 20230607
  15. MESALAMINE [Concomitant]
     Active Substance: MESALAMINE
     Indication: Crohn^s disease
     Route: 065
  16. MOMETASONE FUROATE [Concomitant]
     Active Substance: MOMETASONE FUROATE
     Indication: Otitis media
     Dosage: 100 MICROGRAM, QD
     Dates: start: 20230610
  17. EUCALYPTOL, LIMONENE AND PINENE [Concomitant]
     Indication: Otitis media
     Dosage: 0.3 GRAM, TID
     Route: 048
     Dates: start: 20230610, end: 202401
  18. PIPERACILLIN AND TAZOBACTAM [Concomitant]
     Active Substance: PIPERACILLIN SODIUM\TAZOBACTAM SODIUM
     Indication: Pneumonia
     Route: 065
  19. MEROPENEM [Concomitant]
     Active Substance: MEROPENEM
     Indication: Pneumonia
     Route: 065
  20. UNSPECIFIED INGREDIENT [Concomitant]
     Active Substance: UNSPECIFIED INGREDIENT
     Indication: Pneumonia
     Route: 065
  21. FLUCONAZOLE [Concomitant]
     Active Substance: FLUCONAZOLE
     Indication: Pneumonia
     Route: 065
  22. GANCICLOVIR [Concomitant]
     Active Substance: GANCICLOVIR
     Indication: Pneumonia
     Route: 065
  23. IBRITUMOMAB TIUXETAN [Concomitant]
     Active Substance: IBRITUMOMAB TIUXETAN

REACTIONS (12)
  - Febrile neutropenia [Recovered/Resolved]
  - Interstitial lung disease [Unknown]
  - Hypothyroidism [Unknown]
  - Thrombosis [Unknown]
  - White blood cell count decreased [Unknown]
  - Alanine aminotransferase increased [Unknown]
  - Neutrophil count decreased [Unknown]
  - Aspartate aminotransferase increased [Unknown]
  - Platelet count decreased [Unknown]
  - Anaemia [Unknown]
  - Fracture [Unknown]
  - Off label use [Unknown]

NARRATIVE: CASE EVENT DATE: 20230601
